FAERS Safety Report 11827400 (Version 1)
Quarter: 2015Q4

REPORT INFORMATION
  Report Type: Spontaneous
  Country: GB (occurrence: GB)
  Receive Date: 20151211
  Receipt Date: 20151211
  Transmission Date: 20160305
  Serious: Yes (Other)
  Sender: FDA-Public Use
  Company Number: GB-SUNOVION-2015SUN000031

PATIENT

DRUGS (5)
  1. ZEBINIX [Suspect]
     Active Substance: ESLICARBAZEPINE ACETATE
     Indication: EPILEPSY
     Dosage: 800 MG, QD
     Route: 048
     Dates: start: 2014
  2. ANTIEPILEPTICS [Concomitant]
     Active Substance: UNSPECIFIED INGREDIENT
     Indication: EPILEPSY
  3. ZEBINIX [Suspect]
     Active Substance: ESLICARBAZEPINE ACETATE
     Dosage: 1200 MG, DAILY
     Route: 048
  4. ZEBINIX [Suspect]
     Active Substance: ESLICARBAZEPINE ACETATE
     Dosage: 800 MG, QD
  5. KEPPRA [Concomitant]
     Active Substance: LEVETIRACETAM
     Indication: EPILEPSY
     Dosage: UNK

REACTIONS (4)
  - Seizure [Recovered/Resolved]
  - Drug dose titration not performed [Unknown]
  - Feeling drunk [Recovered/Resolved]
  - Discomfort [Recovered/Resolved]
